FAERS Safety Report 9980076 (Version 1)
Quarter: 2014Q1

REPORT INFORMATION
  Report Type: Report from Study
  Country: US (occurrence: US)
  Receive Date: 20140307
  Receipt Date: 20140307
  Transmission Date: 20141002
  Serious: No
  Sender: FDA-Public Use
  Company Number: US-ABBVIE-13P-163-1176902-00

PATIENT
  Age: 58 Year
  Sex: Male
  Weight: 113.5 kg

DRUGS (4)
  1. HUMIRA [Suspect]
     Indication: ANKYLOSING SPONDYLITIS
     Dates: start: 20131122
  2. CYMBALTA [Concomitant]
     Indication: DEPRESSION
  3. NORCO [Concomitant]
     Indication: PAIN
  4. METOPROLOL [Concomitant]
     Indication: HYPERTENSION

REACTIONS (1)
  - Lymphocyte count increased [Not Recovered/Not Resolved]
